FAERS Safety Report 15991112 (Version 1)
Quarter: 2019Q1

REPORT INFORMATION
  Report Type: Report from Study
  Country: GB (occurrence: GB)
  Receive Date: 20190221
  Receipt Date: 20190221
  Transmission Date: 20190418
  Serious: Yes (Other)
  Sender: FDA-Public Use
  Company Number: GB-JNJFOC-20190220340

PATIENT
  Age: 48 Year
  Sex: Male

DRUGS (1)
  1. STELARA [Suspect]
     Active Substance: USTEKINUMAB
     Indication: PSORIASIS
     Route: 058
     Dates: start: 20160108

REACTIONS (3)
  - Lower respiratory tract infection [Recovered/Resolved]
  - Inappropriate schedule of product administration [Unknown]
  - Psoriasis [Unknown]

NARRATIVE: CASE EVENT DATE: 20180910
